FAERS Safety Report 8501428-0 (Version None)
Quarter: 2012Q3

REPORT INFORMATION
  Report Type: 
  Country: None (occurrence: None)
  Receive Date: 20120710
  Receipt Date: 20120705
  Transmission Date: 20120928
  Serious: Yes (Hospitalization)
  Sender: FDA-Public Use
  Company Number: DE-ROCHE-1084822

PATIENT
  Sex: Female

DRUGS (28)
  1. CYCLOPHOSPHAMIDE [Suspect]
     Indication: B-CELL LYMPHOMA
     Route: 042
     Dates: start: 20120612
  2. NEULASTA [Suspect]
     Indication: B-CELL LYMPHOMA
     Route: 058
     Dates: start: 20120615
  3. GRANISETRON [Concomitant]
     Dates: start: 20120613
  4. OLMESARTAN MEDOXOMIL [Concomitant]
     Route: 048
  5. TORSEMIDE [Concomitant]
     Route: 048
     Dates: start: 20120629
  6. DIAZEPAM [Concomitant]
     Route: 048
  7. BISOPROLOL FUMARATE AND HYDROCHLOROTHIAZIDE [Concomitant]
     Dosage: 5/12.5 MG/DAY
     Route: 048
     Dates: start: 20120617, end: 20120622
  8. MABTHERA [Suspect]
     Indication: B-CELL LYMPHOMA
     Route: 042
     Dates: start: 20120611
  9. CLEMASTIN [Concomitant]
     Route: 042
     Dates: start: 20120611
  10. ACETAMINOPHEN [Concomitant]
     Route: 048
     Dates: start: 20120611
  11. ALLOPURINOL [Concomitant]
     Route: 048
     Dates: start: 20120612
  12. SULPHAMETHIZOLE [Concomitant]
     Route: 048
     Dates: start: 20120612
  13. DIPYRONE TAB [Concomitant]
     Route: 048
  14. CARBAMAZEPINE [Concomitant]
     Route: 048
  15. PREDNISOLONE [Suspect]
     Indication: B-CELL LYMPHOMA
     Dates: start: 20120611
  16. GRANISETRON [Concomitant]
     Dates: start: 20120612
  17. ALIZAPRIDE [Concomitant]
     Route: 048
  18. TRIMETHOPRIM [Concomitant]
     Route: 048
     Dates: start: 20120612
  19. BUTYLSCOPOLAMINE [Concomitant]
     Route: 054
     Dates: start: 20120629
  20. ACYCLOVIR [Concomitant]
     Route: 048
     Dates: start: 20120612
  21. LEVOFLOXACIN [Concomitant]
     Dates: start: 20120617, end: 20120622
  22. OPIPRAMOL HYDROCHLORIDE [Concomitant]
     Route: 048
  23. VINCRISTINE [Suspect]
     Indication: B-CELL LYMPHOMA
     Dates: start: 20120612
  24. POTASSIUM CHLORIDE [Concomitant]
     Route: 048
     Dates: start: 20120622, end: 20120626
  25. DOXORUBICIN HCL [Suspect]
     Indication: B-CELL LYMPHOMA
     Route: 042
     Dates: start: 20120612
  26. RANITIDINE [Concomitant]
     Route: 042
     Dates: start: 20120611
  27. NITRENDIPIN [Concomitant]
     Route: 048
  28. SIMVASTATIN [Concomitant]
     Route: 048

REACTIONS (1)
  - PRESYNCOPE [None]
